FAERS Safety Report 16284430 (Version 1)
Quarter: 2019Q2

REPORT INFORMATION
  Report Type: Report from Study
  Country: None (occurrence: IL)
  Receive Date: 20190508
  Receipt Date: 20190508
  Transmission Date: 20190711
  Serious: Yes (Hospitalization, Other)
  Sender: FDA-Public Use
  Company Number: IL-ABBVIE-19K-082-2750301-00

PATIENT
  Sex: Male

DRUGS (2)
  1. HUMIRA [Suspect]
     Active Substance: ADALIMUMAB
     Indication: HIDRADENITIS
     Route: 058
     Dates: start: 20181212
  2. CLINDCLINDAA [Concomitant]
     Indication: PRODUCT USED FOR UNKNOWN INDICATION

REACTIONS (7)
  - Insomnia [Unknown]
  - Testicular disorder [Unknown]
  - Inflammation [Unknown]
  - Negative thoughts [Unknown]
  - Bacterial disease carrier [Unknown]
  - Drug ineffective [Unknown]
  - Wound [Unknown]
